FAERS Safety Report 12893569 (Version 1)
Quarter: 2016Q4

REPORT INFORMATION
  Report Type: Spontaneous
  Country: FR (occurrence: FR)
  Receive Date: 20161028
  Receipt Date: 20161028
  Transmission Date: 20170207
  Serious: Yes (Other)
  Sender: FDA-Public Use
  Company Number: FR-PFIZER INC-2016492866

PATIENT
  Age: 58 Year
  Sex: Female

DRUGS (5)
  1. ZOLOFT [Suspect]
     Active Substance: SERTRALINE HYDROCHLORIDE
     Route: 048
  2. INSULIN [Concomitant]
     Active Substance: INSULIN NOS
  3. METFORMIN [Concomitant]
     Active Substance: METFORMIN HYDROCHLORIDE
  4. ISOMERIDE [Suspect]
     Active Substance: DEXFENFLURAMINE
     Dosage: 30 MG, 1X/DAY
     Route: 048
     Dates: start: 1990, end: 1992
  5. MEDIATOR [Suspect]
     Active Substance: BENFLUOREX
     Indication: OVERWEIGHT
     Route: 048

REACTIONS (2)
  - Mitral valve disease [Not Recovered/Not Resolved]
  - Aortic valve disease [Not Recovered/Not Resolved]
